FAERS Safety Report 9493872 (Version 2)
Quarter: 2013Q4

REPORT INFORMATION
  Report Type: Spontaneous
  Country: CA (occurrence: CA)
  Receive Date: 20130902
  Receipt Date: 20131004
  Transmission Date: 20140711
  Serious: Yes (Other)
  Sender: FDA-Public Use
  Company Number: CA-JNJFOC-20130811505

PATIENT
  Age: 43 Year
  Sex: Female
  Weight: 72.58 kg

DRUGS (2)
  1. NICODERM STEP 3 CLEAR [Suspect]
     Route: 061
  2. NICODERM STEP 3 CLEAR [Suspect]
     Indication: SMOKING CESSATION THERAPY
     Route: 061
     Dates: start: 20130406, end: 20130418

REACTIONS (7)
  - Multiple sclerosis relapse [Not Recovered/Not Resolved]
  - Sciatica [Not Recovered/Not Resolved]
  - Hypoaesthesia [Not Recovered/Not Resolved]
  - Hypoaesthesia [Not Recovered/Not Resolved]
  - Restless legs syndrome [Not Recovered/Not Resolved]
  - Dizziness [Not Recovered/Not Resolved]
  - Motor dysfunction [Not Recovered/Not Resolved]
